FAERS Safety Report 7630662-7 (Version None)
Quarter: 2011Q3

REPORT INFORMATION
  Report Type: 
  Country: None (occurrence: None)
  Receive Date: 20110722
  Receipt Date: 20110705
  Transmission Date: 20111222
  Serious: Yes (Death, Other)
  Sender: FDA-Public Use
  Company Number: US-BAXTER-2010BH003371

PATIENT
  Age: 58 Year
  Sex: Male

DRUGS (4)
  1. HEPARIN SODIUM INJECTION [Suspect]
     Route: 065
     Dates: start: 20080501, end: 20080501
  2. HEPARIN SODIUM 5,000 UNITS IN DEXTROSE 5% [Suspect]
     Indication: PULMONARY EMBOLISM
     Route: 042
     Dates: start: 20080501, end: 20080516
  3. LOPRESSOR [Suspect]
     Indication: PRODUCT USED FOR UNKNOWN INDICATION
     Route: 042
     Dates: start: 20080501
  4. HEPARIN SODIUM INJECTION [Suspect]
     Indication: VENOUS OPERATION
     Route: 042
     Dates: start: 20080507, end: 20080507

REACTIONS (17)
  - SEPSIS [None]
  - PULSE ABSENT [None]
  - PULMONARY EMBOLISM [None]
  - RENAL FAILURE ACUTE [None]
  - HYPERHIDROSIS [None]
  - TACHYCARDIA [None]
  - HYPOXIC-ISCHAEMIC ENCEPHALOPATHY [None]
  - PULSELESS ELECTRICAL ACTIVITY [None]
  - HYPOTENSION [None]
  - ERYTHEMA [None]
  - RESPIRATORY FAILURE [None]
  - MENTAL DISORDER [None]
  - PHARYNGEAL OEDEMA [None]
  - CARDIAC FAILURE [None]
  - HYPOXIA [None]
  - STAPHYLOCOCCAL BACTERAEMIA [None]
  - BRADYCARDIA [None]
